FAERS Safety Report 5648076-8 (Version None)
Quarter: 2008Q1

REPORT INFORMATION
  Report Type: 
  Country: None (occurrence: None)
  Receive Date: 20080229
  Receipt Date: 20071210
  Transmission Date: 20080703
  Serious: Yes (Other)
  Sender: FDA-Public Use
  Company Number: 2008AL000920

PATIENT
  Sex: Male

DRUGS (5)
  1. SPIRONOLACTONE [Suspect]
     Dosage: 04 MG/KG; QD; PO
     Route: 048
  2. FUROSEMIDE [Concomitant]
  3. DIAZOXIDE [Concomitant]
  4. ASPIRIN [Concomitant]
  5. DIAZOXIDE [Concomitant]

REACTIONS (2)
  - HYPERGLYCAEMIA [None]
  - HYPOGLYCAEMIA [None]
